FAERS Safety Report 7482385-5 (Version None)
Quarter: 2011Q2

REPORT INFORMATION
  Report Type: 
  Country: None (occurrence: None)
  Receive Date: 20110516
  Receipt Date: 20110509
  Transmission Date: 20111010
  Serious: No
  Sender: FDA-Public Use
  Company Number: US-PFIZER INC-2011099955

PATIENT
  Age: 80 Year
  Sex: Male
  Weight: 63.492 kg

DRUGS (3)
  1. AZITHROMYCIN [Suspect]
     Indication: COUGH
     Dosage: 250 MG, 2X/DAY
     Route: 048
     Dates: start: 20110429, end: 20110429
  2. AZITHROMYCIN [Suspect]
     Indication: NASAL MUCOSAL DISORDER
     Dosage: 250 MG, 1X/DAY
     Route: 048
     Dates: start: 20110430, end: 20110501
  3. ZOCOR [Concomitant]
     Indication: BLOOD CHOLESTEROL INCREASED
     Dosage: UNK

REACTIONS (7)
  - HEART RATE INCREASED [None]
  - ARTHRALGIA [None]
  - ASTHENIA [None]
  - RENAL PAIN [None]
  - PAIN IN EXTREMITY [None]
  - CONSTIPATION [None]
  - INSOMNIA [None]
